FAERS Safety Report 16949779 (Version 7)
Quarter: 2021Q3

REPORT INFORMATION
  Report Type: Report from Study
  Country: US (occurrence: US)
  Receive Date: 20191023
  Receipt Date: 20210906
  Transmission Date: 20211014
  Serious: Yes (Hospitalization, Other)
  Sender: FDA-Public Use
  Company Number: US-SHIRE-US201935634

PATIENT
  Age: 77 Year
  Sex: Female
  Weight: 99 kg

DRUGS (30)
  1. ACETAMINOPHEN. [Concomitant]
     Active Substance: ACETAMINOPHEN
  2. VENTOLIN [Concomitant]
     Active Substance: ALBUTEROL SULFATE
  3. CUVITRU [Suspect]
     Active Substance: HUMAN IMMUNOGLOBULIN G
     Indication: IMMUNODEFICIENCY COMMON VARIABLE
     Dosage: 12 GRAM, 1/WEEK
     Route: 058
     Dates: start: 20190801
  4. LIDOCAINE. [Concomitant]
     Active Substance: LIDOCAINE
  5. LORATADINE. [Concomitant]
     Active Substance: LORATADINE
  6. PEPCID [ALUMINIUM HYDROXIDE GEL, DRIED;MAGNESIUM CARBONATE] [Concomitant]
     Active Substance: ALUMINUM HYDROXIDE\MAGNESIUM CARBONATE
  7. OMEPRAZOLE. [Concomitant]
     Active Substance: OMEPRAZOLE
  8. PREMARIN [Concomitant]
     Active Substance: ESTROGENS, CONJUGATED
  9. VENTOLIN [GUAIFENESIN;SALBUTAMOL SULFATE] [Concomitant]
     Active Substance: ALBUTEROL\GUAIFENESIN
  10. ALBUTEROL. [Concomitant]
     Active Substance: ALBUTEROL
  11. DIPHENHYDRAMINE. [Concomitant]
     Active Substance: DIPHENHYDRAMINE
  12. LIOTHYRONINE [Concomitant]
     Active Substance: LIOTHYRONINE
  13. PRILOCAINE [Concomitant]
     Active Substance: PRILOCAINE
  14. TRIAMCINOLONE ACETONIDE. [Concomitant]
     Active Substance: TRIAMCINOLONE ACETONIDE
  15. LIDOCAINE/PRILOCAINE [Concomitant]
     Active Substance: LIDOCAINE\PRILOCAINE
  16. MULTIVITAMINS [VITAMINS NOS] [Concomitant]
     Active Substance: VITAMINS
  17. DOXYCYCLINE HYCLATE [DOXYCYCLINE] [Concomitant]
  18. BETAMETHASONE. [Concomitant]
     Active Substance: BETAMETHASONE
  19. IBUPROFEN. [Concomitant]
     Active Substance: IBUPROFEN
  20. ATENOLOL. [Concomitant]
     Active Substance: ATENOLOL
  21. TRIAMCINOLONE [Concomitant]
     Active Substance: TRIAMCINOLONE
  22. DOXYCYCLINE HYCLATE. [Concomitant]
     Active Substance: DOXYCYCLINE HYCLATE
  23. CLOBETASOL [Concomitant]
     Active Substance: CLOBETASOL
  24. CUVITRU [Suspect]
     Active Substance: HUMAN IMMUNOGLOBULIN G
     Indication: ALPHA-1 ANTITRYPSIN DEFICIENCY
     Dosage: 12 GRAM, 1/WEEK
     Route: 058
     Dates: start: 20190731
  25. EPINEPHRINE. [Concomitant]
     Active Substance: EPINEPHRINE
  26. VALSARTAN. [Concomitant]
     Active Substance: VALSARTAN
  27. FLUTICASONE. [Concomitant]
     Active Substance: FLUTICASONE
  28. ZADITOR [KETOTIFEN FUMARATE] [Concomitant]
  29. SYNTHROID [Concomitant]
     Active Substance: LEVOTHYROXINE SODIUM
  30. HYDROXYCHLOROQUINE [Concomitant]
     Active Substance: HYDROXYCHLOROQUINE

REACTIONS (11)
  - Atrial fibrillation [Unknown]
  - Product dose omission issue [Unknown]
  - Headache [Unknown]
  - Infusion site erythema [Unknown]
  - Bronchitis [Unknown]
  - Fatigue [Unknown]
  - Atrial flutter [Unknown]
  - Infusion site swelling [Unknown]
  - Sinusitis [Unknown]
  - Intentional product use issue [Unknown]
  - Product prescribing error [Unknown]

NARRATIVE: CASE EVENT DATE: 20200103
